APPROVED DRUG PRODUCT: FANSIDAR
Active Ingredient: PYRIMETHAMINE; SULFADOXINE
Strength: 25MG;500MG
Dosage Form/Route: TABLET;ORAL
Application: N018557 | Product #001
Applicant: HOFFMANN LA ROCHE INC
Approved: Approved Prior to Jan 1, 1982 | RLD: No | RS: No | Type: DISCN